FAERS Safety Report 16650146 (Version 1)
Quarter: 2019Q3

REPORT INFORMATION
  Report Type: Spontaneous
  Country: IT (occurrence: IT)
  Receive Date: 20190731
  Receipt Date: 20190731
  Transmission Date: 20191004
  Serious: Yes (Death, Hospitalization)
  Sender: FDA-Public Use
  Company Number: IT-TEVA-2019-IT-1084423

PATIENT
  Sex: Female

DRUGS (1)
  1. OLANZAPINA TEVA [Suspect]
     Active Substance: OLANZAPINE
     Route: 065
     Dates: start: 201704

REACTIONS (5)
  - Fall [Unknown]
  - Feeding tube user [Unknown]
  - Scoliosis [Unknown]
  - Weight decreased [Unknown]
  - Death [Fatal]
